FAERS Safety Report 8087462-6 (Version None)
Quarter: 2012Q1

REPORT INFORMATION
  Report Type: 
  Country: None (occurrence: None)
  Receive Date: 20120128
  Receipt Date: 20110524
  Transmission Date: 20120608
  Serious: No
  Sender: FDA-Public Use
  Company Number: US-ABBOTT-11P-163-0728045-00

PATIENT
  Age: 32 Year
  Sex: Female

DRUGS (3)
  1. HUMIRA [Suspect]
     Dates: start: 20110201, end: 20110301
  2. HUMIRA [Suspect]
     Indication: PSORIATIC ARTHROPATHY
     Dates: start: 20090101, end: 20100101
  3. HUMIRA [Suspect]
     Dates: start: 20110501

REACTIONS (2)
  - PSORIATIC ARTHROPATHY [None]
  - HERPES ZOSTER [None]
